FAERS Safety Report 4573923-0 (Version None)
Quarter: 2005Q1

REPORT INFORMATION
  Report Type: 
  Country: None (occurrence: None)
  Receive Date: 20050203
  Receipt Date: 20050114
  Transmission Date: 20050727
  Serious: Yes (Disabling)
  Sender: FDA-Public Use
  Company Number: 2005-SW-00039DB

PATIENT
  Age: 70 Year
  Sex: Male

DRUGS (1)
  1. SIFROL                             (PRAMIPEXOLE DIHYDROCHLORIDE) [Suspect]
     Indication: PARKINSON'S DISEASE
     Dosage: 0.264 MG (0.088 MG 1 IN 8 HR)
     Route: 048
     Dates: start: 20041119, end: 20041215

REACTIONS (8)
  - ANOREXIA [None]
  - CONDITION AGGRAVATED [None]
  - DEPRESSION [None]
  - DIZZINESS [None]
  - INSOMNIA [None]
  - PARKINSON'S DISEASE [None]
  - RESTLESSNESS [None]
  - TREMOR [None]
